FAERS Safety Report 14415255 (Version 1)
Quarter: 2018Q1

REPORT INFORMATION
  Report Type: Other
  Country: TR (occurrence: KW)
  Receive Date: 20180121
  Receipt Date: 20180121
  Transmission Date: 20180509
  Serious: Yes (Hospitalization, Other)
  Sender: FDA-Public Use
  Company Number: KW-BIO-PHARM, INC -2040429

PATIENT

DRUGS (1)
  1. RANITIDINE. [Suspect]
     Active Substance: RANITIDINE

REACTIONS (1)
  - Trichoglossia [Recovered/Resolved]
